FAERS Safety Report 7047858-8 (Version None)
Quarter: 2010Q4

REPORT INFORMATION
  Report Type: 
  Country: None (occurrence: None)
  Receive Date: 20101015
  Receipt Date: 20101005
  Transmission Date: 20110411
  Serious: Yes (Death, Hospitalization, Other)
  Sender: FDA-Public Use
  Company Number: CA-ELI_LILLY_AND_COMPANY-CA201009000550

PATIENT
  Age: 90 Year
  Sex: Female
  Weight: 46.8 kg

DRUGS (7)
  1. FORTEO [Suspect]
     Indication: OSTEOPOROSIS
     Dosage: 20 UG, DAILY (1/D)
     Route: 058
     Dates: start: 20100420, end: 20100729
  2. PREDNISONE [Concomitant]
     Dosage: 4 MG, DAILY (1/D)
  3. AMITRIPTYLINE [Concomitant]
     Dosage: 10 MG, DAILY (1/D)
  4. NORVASC [Concomitant]
  5. RAMIPRIL [Concomitant]
  6. TYLENOL (CAPLET) [Concomitant]
     Dosage: 1000 MG, DAILY (1/D)
  7. CLONAZEPAM [Concomitant]
     Dosage: 0.125 MG, 3/D

REACTIONS (3)
  - DEATH [None]
  - MYOCARDIAL INFARCTION [None]
  - RENAL FAILURE ACUTE [None]
